FAERS Safety Report 7958754-3 (Version None)
Quarter: 2011Q4

REPORT INFORMATION
  Report Type: 
  Country: None (occurrence: None)
  Receive Date: 20111206
  Receipt Date: 20111130
  Transmission Date: 20120403
  Serious: Yes (Death)
  Sender: FDA-Public Use
  Company Number: JP-JNJFOC-20111111034

PATIENT
  Age: 63 Year
  Sex: Male

DRUGS (2)
  1. FENTANYL-100 [Suspect]
     Route: 062
     Dates: end: 20111121
  2. FENTANYL-100 [Suspect]
     Indication: CANCER PAIN
     Route: 062
     Dates: start: 20111121

REACTIONS (3)
  - PULMONARY HAEMORRHAGE [None]
  - BRONCHIAL FISTULA [None]
  - PRODUCTIVE COUGH [None]
